FAERS Safety Report 6676468-7 (Version None)
Quarter: 2010Q2

REPORT INFORMATION
  Report Type: 
  Country: None (occurrence: None)
  Receive Date: 20100412
  Receipt Date: 20100407
  Transmission Date: 20101027
  Serious: Yes (Death, Other)
  Sender: FDA-Public Use
  Company Number: PHHY2010MX05987

PATIENT
  Sex: Female

DRUGS (1)
  1. DIOVAN [Suspect]
     Indication: HYPERTENSION
     Dosage: 1/4 TABLET (80 MG) PER DAY
     Route: 048
     Dates: start: 20090401, end: 20091101

REACTIONS (5)
  - CARDIAC FAILURE [None]
  - CARDIO-RESPIRATORY ARREST [None]
  - CEREBRAL ARTERY EMBOLISM [None]
  - MYOCARDIAL INFARCTION [None]
  - SPEECH DISORDER [None]
